FAERS Safety Report 16599579 (Version 1)
Quarter: 2019Q3

REPORT INFORMATION
  Report Type: Report from Study
  Country: GB (occurrence: GB)
  Receive Date: 20190720
  Receipt Date: 20190720
  Transmission Date: 20191004
  Serious: Yes (Other)
  Sender: FDA-Public Use
  Company Number: GB-AMGEN-GBRCT2019116142

PATIENT
  Sex: Female

DRUGS (2)
  1. ERENUMAB [Suspect]
     Active Substance: ERENUMAB
     Indication: MIGRAINE
     Dosage: 70 MILLIGRAM
     Route: 065
     Dates: start: 20181001
  2. ERENUMAB [Suspect]
     Active Substance: ERENUMAB
     Dosage: 140 MILLIGRAM
     Route: 065
     Dates: start: 20190101, end: 20190429

REACTIONS (12)
  - Alopecia [Not Recovered/Not Resolved]
  - Injection site coldness [Recovered/Resolved]
  - Injection site pruritus [Recovered/Resolved]
  - Nephrolithiasis [Recovered/Resolved]
  - Renal impairment [Unknown]
  - Fatigue [Unknown]
  - Headache [Recovered/Resolved]
  - Constipation [Not Recovered/Not Resolved]
  - Injection site pain [Recovered/Resolved]
  - Muscle spasms [Recovered/Resolved]
  - Electric shock [Unknown]
  - Drug ineffective [Recovered/Resolved]

NARRATIVE: CASE EVENT DATE: 20181001
